FAERS Safety Report 7383684-8 (Version None)
Quarter: 2011Q1

REPORT INFORMATION
  Report Type: 
  Country: None (occurrence: None)
  Receive Date: 20110325
  Receipt Date: 20110325
  Transmission Date: 20110831
  Serious: Yes (Life-Threatening, Hospitalization)
  Sender: FDA-Public Use
  Company Number: None

PATIENT
  Age: 84 Year
  Sex: Male

DRUGS (3)
  1. HEPARIN SODIUM 1,000 UNITS IN DEXTROSE 5% [Suspect]
     Indication: ANGINA UNSTABLE
     Dates: start: 20110121, end: 20110125
  2. HEPARIN SODIUM 1,000 UNITS IN DEXTROSE 5% [Suspect]
     Indication: PROPHYLAXIS
     Dates: start: 20110121, end: 20110125
  3. HEPARIN SODIUM 1,000 UNITS IN DEXTROSE 5% [Suspect]
     Indication: CEREBROVASCULAR ACCIDENT
     Dates: start: 20110121, end: 20110125

REACTIONS (3)
  - CORONARY ARTERY STENOSIS [None]
  - THROMBOCYTOPENIA [None]
  - AORTIC CALCIFICATION [None]
